FAERS Safety Report 7130882-4 (Version None)
Quarter: 2010Q4

REPORT INFORMATION
  Report Type: 
  Country: None (occurrence: None)
  Receive Date: 20101101
  Receipt Date: 20100826
  Transmission Date: 20110411
  Serious: No
  Sender: FDA-Public Use
  Company Number: 2009-07437

PATIENT
  Age: 68 Year
  Sex: Male

DRUGS (1)
  1. RAPAFLO [Suspect]
     Indication: POLLAKIURIA
     Dosage: 1 CAPSULE, DAILY, ORAL
     Route: 048
     Dates: start: 20090701, end: 20090701

REACTIONS (5)
  - DRUG INEFFECTIVE [None]
  - DYSURIA [None]
  - POLLAKIURIA [None]
  - PROSTATITIS [None]
  - URINARY TRACT PAIN [None]
